FAERS Safety Report 20327761 (Version 7)
Quarter: 2025Q2

REPORT INFORMATION
  Report Type: Spontaneous
  Country: US (occurrence: US)
  Receive Date: 20220112
  Receipt Date: 20250505
  Transmission Date: 20250717
  Serious: No
  Sender: PFIZER
  Company Number: US-PFIZER INC-202101381530

PATIENT
  Age: 57 Year
  Sex: Female

DRUGS (3)
  1. IBRANCE [Suspect]
     Active Substance: PALBOCICLIB
     Indication: Breast cancer female
     Route: 048
     Dates: start: 20210909
  2. LETROZOLE [Concomitant]
     Active Substance: LETROZOLE
  3. LISINOPRIL AND HYDROCHLOROTHIAZIDE [Concomitant]
     Active Substance: HYDROCHLOROTHIAZIDE\LISINOPRIL

REACTIONS (10)
  - Insomnia [Unknown]
  - Dry skin [Unknown]
  - Diarrhoea [Recovering/Resolving]
  - Headache [Unknown]
  - Fatigue [Unknown]
  - Nausea [Recovered/Resolved]
  - Dyspnoea [Unknown]
  - Hot flush [Unknown]
  - Alopecia [Unknown]
  - Epistaxis [Unknown]
